FAERS Safety Report 16268148 (Version 1)
Quarter: 2019Q2

REPORT INFORMATION
  Report Type: Spontaneous
  Country: US (occurrence: US)
  Receive Date: 20190503
  Receipt Date: 20190503
  Transmission Date: 20190711
  Serious: Yes (Life-Threatening, Other)
  Sender: FDA-Public Use
  Company Number: US-009507513-1904USA011234

PATIENT
  Age: 59 Year
  Sex: Male

DRUGS (2)
  1. HEPARIN [Concomitant]
     Active Substance: HEPARIN SODIUM
     Indication: PERCUTANEOUS CORONARY INTERVENTION
     Dosage: UNK
     Route: 042
  2. INTEGRILIN [Suspect]
     Active Substance: EPTIFIBATIDE
     Indication: PERCUTANEOUS CORONARY INTERVENTION
     Dosage: UNK
     Route: 042

REACTIONS (1)
  - Thrombocytopenia [Recovered/Resolved]
